FAERS Safety Report 6628441-2 (Version None)
Quarter: 2010Q1

REPORT INFORMATION
  Report Type: 
  Country: None (occurrence: None)
  Receive Date: 20100311
  Receipt Date: 20100226
  Transmission Date: 20100710
  Serious: Yes (Other)
  Sender: FDA-Public Use
  Company Number: US-PFIZER INC-2004047216

PATIENT
  Sex: Female
  Weight: 113.38 kg

DRUGS (18)
  1. NEURONTIN [Suspect]
     Indication: PAIN
     Route: 048
     Dates: start: 20040218
  2. NEURONTIN [Suspect]
     Indication: NEUROPATHY PERIPHERAL
  3. NEURONTIN [Suspect]
     Indication: DIABETIC NEUROPATHY
  4. LYRICA [Suspect]
     Indication: FIBROMYALGIA
     Dosage: 75 MG, 2X/DAY
     Route: 048
     Dates: start: 20100101
  5. LYRICA [Suspect]
     Dosage: 100 MG, 2X/DAY
     Route: 048
  6. LISINOPRIL [Concomitant]
     Route: 065
  7. SPIRONOLACTONE [Concomitant]
     Route: 065
  8. PREDNISONE [Concomitant]
     Dosage: 8 MG, 1X/DAY
     Route: 065
  9. HYDROCODONE [Concomitant]
     Route: 065
  10. ATENOLOL [Concomitant]
     Route: 065
  11. VENLAFAXINE [Concomitant]
     Route: 065
  12. NEXIUM [Concomitant]
     Dosage: UNK
  13. PREVACID [Concomitant]
     Dosage: UNK
  14. MORPHINE [Concomitant]
     Indication: PAIN
     Dosage: 60 MG, 2X/DAY
  15. TYLENOL-500 [Concomitant]
     Indication: PAIN
     Dosage: UNK
  16. ACTOS [Concomitant]
     Indication: DIABETES MELLITUS
     Dosage: UNK
  17. COZAAR [Concomitant]
     Dosage: 50 MG, DAILY
  18. MOTRIN [Concomitant]
     Indication: PAIN
     Dosage: UNK

REACTIONS (11)
  - BALANCE DISORDER [None]
  - BRADYPHRENIA [None]
  - DRY MOUTH [None]
  - FATIGUE [None]
  - FIBROMYALGIA [None]
  - NEUROPATHY PERIPHERAL [None]
  - OEDEMA [None]
  - OEDEMA PERIPHERAL [None]
  - PAIN [None]
  - SOMNOLENCE [None]
  - THINKING ABNORMAL [None]
